FAERS Safety Report 16281500 (Version 4)
Quarter: 2019Q2

REPORT INFORMATION
  Report Type: Spontaneous
  Country: US (occurrence: US)
  Receive Date: 20190507
  Receipt Date: 20190604
  Transmission Date: 20190711
  Serious: No
  Sender: FDA-Public Use
  Company Number: US-PFIZER INC-2019189223

PATIENT
  Age: 56 Year
  Sex: Male
  Weight: 91 kg

DRUGS (3)
  1. LYRICA [Suspect]
     Active Substance: PREGABALIN
     Indication: SPINAL OPERATION
     Dosage: 50 MG, 2X/DAY (1 CAPSULE BY MOUTH DAILY THE FIRST 5 DAYS, THEN TWICE DAILY AT NIGHT)
     Route: 048
     Dates: start: 2019
  2. LYRICA [Suspect]
     Active Substance: PREGABALIN
     Dosage: 75 MG, 3X/DAY
     Route: 048
  3. LYRICA [Suspect]
     Active Substance: PREGABALIN
     Indication: NEURALGIA
     Dosage: 50 MG, DAILY (1 CAPSULE BY MOUTH DAILY THE FIRST 5 DAYS, THEN TWICE DAILY AT NIGHT)
     Route: 048
     Dates: start: 20190424

REACTIONS (3)
  - Drug ineffective [Unknown]
  - Herpes zoster [Unknown]
  - Post herpetic neuralgia [Unknown]

NARRATIVE: CASE EVENT DATE: 201904
